FAERS Safety Report 4486571-8 (Version None)
Quarter: 2004Q4

REPORT INFORMATION
  Report Type: 
  Country: None (occurrence: None)
  Receive Date: 20041021
  Receipt Date: 20041014
  Transmission Date: 20050328
  Serious: Yes (Death, Life-Threatening, Hospitalization)
  Sender: FDA-Public Use
  Company Number: 2004221307PL

PATIENT
  Age: 64 Year
  Sex: Male

DRUGS (8)
  1. CAMPTOSAR [Suspect]
     Indication: SMALL CELL LUNG CANCER STAGE UNSPECIFIED
     Dosage: 120 MG, CYCLIC, IV
     Route: 042
     Dates: start: 20040507, end: 20040514
  2. CISPLATIN [Suspect]
     Indication: SMALL CELL LUNG CANCER STAGE UNSPECIFIED
     Dosage: 150 MG, CYCLIC, IV
     Route: 042
     Dates: start: 20040507, end: 20040514
  3. DILATREND [Concomitant]
  4. LOSARTAN (LOSARTAN) [Concomitant]
  5. FUROSEMIDE [Concomitant]
  6. KALIPOR [Concomitant]
  7. THEOPHYLLINE [Concomitant]
  8. CEFUROXIME [Concomitant]

REACTIONS (14)
  - BLOOD PRESSURE IMMEASURABLE [None]
  - BONE MARROW DEPRESSION [None]
  - CARDIOPULMONARY FAILURE [None]
  - CYANOSIS [None]
  - DEHYDRATION [None]
  - DIARRHOEA [None]
  - DRUG TOXICITY [None]
  - ELECTROLYTE IMBALANCE [None]
  - GENERAL PHYSICAL HEALTH DETERIORATION [None]
  - HEART RATE INCREASED [None]
  - HEART RATE IRREGULAR [None]
  - MULTI-ORGAN FAILURE [None]
  - SHOCK [None]
  - VOMITING [None]
